FAERS Safety Report 11613631 (Version 1)
Quarter: 2015Q4

REPORT INFORMATION
  Report Type: Spontaneous
  Country: US (occurrence: US)
  Receive Date: 20151008
  Receipt Date: 20151008
  Transmission Date: 20160304
  Serious: Yes (Hospitalization, Other)
  Sender: FDA-Public Use
  Company Number: US-GLAXOSMITHKLINE-US2015GSK143679

PATIENT
  Sex: Female

DRUGS (1)
  1. MEKINIST [Suspect]
     Active Substance: TRAMETINIB DIMETHYL SULFOXIDE
     Indication: PRODUCT USED FOR UNKNOWN INDICATION
     Dosage: UNK
     Dates: start: 20150902, end: 20150916

REACTIONS (5)
  - Asthenia [Not Recovered/Not Resolved]
  - Hospitalisation [Unknown]
  - Haematochezia [Not Recovered/Not Resolved]
  - Oedema [Not Recovered/Not Resolved]
  - Blood urine present [Not Recovered/Not Resolved]
